FAERS Safety Report 7682615-0 (Version None)
Quarter: 2011Q3

REPORT INFORMATION
  Report Type: 
  Country: None (occurrence: None)
  Receive Date: 20110815
  Receipt Date: 20110801
  Transmission Date: 20111222
  Serious: Yes (Hospitalization)
  Sender: FDA-Public Use
  Company Number: FR-MYLANLABS-2011S1015712

PATIENT
  Age: 58 Year
  Sex: Male

DRUGS (7)
  1. GENTAMICIN [Suspect]
     Dates: start: 20110607, end: 20110619
  2. CORDARONE [Concomitant]
  3. BISOPROLOL FUMARATE [Concomitant]
  4. KARDEGIC [Concomitant]
  5. LASIX [Concomitant]
  6. VANCOMYCIN [Suspect]
     Indication: ENDOCARDITIS
     Route: 042
     Dates: start: 20110607, end: 20110619
  7. ATARAX [Concomitant]

REACTIONS (1)
  - THROMBOCYTOPENIC PURPURA [None]
